FAERS Safety Report 18793816 (Version 1)
Quarter: 2021Q1

REPORT INFORMATION
  Report Type: Spontaneous
  Country: US (occurrence: US)
  Receive Date: 20210127
  Receipt Date: 20210127
  Transmission Date: 20210419
  Serious: Yes (Hospitalization)
  Sender: FDA-Public Use
  Company Number: US-ELI_LILLY_AND_COMPANY-US202101009710

PATIENT
  Sex: Male

DRUGS (1)
  1. BAMLANIVIMAB 700MG [Suspect]
     Active Substance: BAMLANIVIMAB
     Indication: COVID-19
     Dosage: 700 MG, SINGLE
     Route: 042
     Dates: start: 20210108, end: 20210108

REACTIONS (9)
  - Respiratory failure [Unknown]
  - Acute myocardial infarction [Unknown]
  - COVID-19 pneumonia [Unknown]
  - Atrial fibrillation [Unknown]
  - Troponin increased [Unknown]
  - Cardiac failure [Unknown]
  - Pulmonary embolism [Unknown]
  - Fibrin D dimer increased [Unknown]
  - Sepsis [Unknown]
